FAERS Safety Report 17360697 (Version 1)
Quarter: 2020Q1

REPORT INFORMATION
  Report Type: Spontaneous
  Country: FR (occurrence: FR)
  Receive Date: 20200203
  Receipt Date: 20200203
  Transmission Date: 20200409
  Serious: Yes (Other)
  Sender: FDA-Public Use
  Company Number: FR-GLAXOSMITHKLINE-FR2019GSK087560

PATIENT

DRUGS (6)
  1. ACYCLOVIR. [Suspect]
     Active Substance: ACYCLOVIR
     Indication: ENCEPHALITIS
     Dosage: 750 MG, TID (10 MG/KG/8 H )
  2. METFORMIN [Concomitant]
     Active Substance: METFORMIN HYDROCHLORIDE
     Indication: PRODUCT USED FOR UNKNOWN INDICATION
     Dosage: UNK
  3. ACYCLOVIR. [Suspect]
     Active Substance: ACYCLOVIR
     Dosage: 15 G, TID 1.2 G/8 H DILUTED IN 250 ML OF SERUM SALINE (4.8 MG/ML OF ACYCLOVIR)
  4. ACYCLOVIR. [Suspect]
     Active Substance: ACYCLOVIR
     Dosage: 750 MG, TID
  5. AMOXICILLIN. [Concomitant]
     Active Substance: AMOXICILLIN
     Indication: ENCEPHALITIS
     Dosage: 12 G, QD
  6. GENTAMYCIN [Concomitant]
     Active Substance: GENTAMICIN
     Indication: ENCEPHALITIS
     Dosage: 240 MG, UNK

REACTIONS (6)
  - Overdose [Unknown]
  - Neurotoxicity [Recovering/Resolving]
  - Agitation [Unknown]
  - Confusional state [Recovering/Resolving]
  - Nephropathy toxic [Recovering/Resolving]
  - Acute kidney injury [Recovering/Resolving]

NARRATIVE: CASE EVENT DATE: 20180513
